FAERS Safety Report 8271081-2 (Version None)
Quarter: 2012Q2

REPORT INFORMATION
  Report Type: 
  Country: None (occurrence: None)
  Receive Date: 20120410
  Receipt Date: 20120404
  Transmission Date: 20120825
  Serious: Yes (Life-Threatening)
  Sender: FDA-Public Use
  Company Number: FR-PFIZER INC-2012084711

PATIENT
  Age: 73 Year
  Sex: Female

DRUGS (13)
  1. LOVENOX [Concomitant]
  2. CALCIUM CARBONATE [Concomitant]
  3. DOMPERIDONE [Concomitant]
  4. PERINDOPRIL [Concomitant]
  5. FLECAINIDE ACETATE [Concomitant]
  6. BISOPROLOL FUMARATE [Concomitant]
  7. CLINDAMYCIN HCL [Suspect]
     Indication: INFECTION
     Dosage: 600 MG, 3X/DAY
     Route: 048
     Dates: start: 20120128, end: 20120229
  8. ACETYLSALICYLATE LYSINE [Concomitant]
  9. PAROXETINE [Concomitant]
  10. VITAMIN B6 [Concomitant]
  11. BACTRIM DS [Suspect]
     Indication: INFECTION
     Dosage: 1 DF, 2X/DAY
     Route: 048
     Dates: start: 20120128, end: 20120210
  12. ESOMEPRAZOLE [Concomitant]
  13. INSULIN [Concomitant]

REACTIONS (2)
  - INCORRECT ROUTE OF DRUG ADMINISTRATION [None]
  - DRUG RASH WITH EOSINOPHILIA AND SYSTEMIC SYMPTOMS [None]
